FAERS Safety Report 21884913 (Version 1)
Quarter: 2023Q1

REPORT INFORMATION
  Report Type: Spontaneous
  Country: US (occurrence: US)
  Receive Date: 20230119
  Receipt Date: 20230119
  Transmission Date: 20230417
  Serious: No
  Sender: FDA-Public Use
  Company Number: US-SUN PHARMACEUTICAL INDUSTRIES LTD-2022R1-341332

PATIENT
  Sex: Male

DRUGS (1)
  1. LEVULAN KERASTICK [Suspect]
     Active Substance: AMINOLEVULINIC ACID HYDROCHLORIDE
     Indication: Actinic keratosis
     Dosage: UNK UNK, OD
     Route: 061
     Dates: start: 20220510, end: 20220510

REACTIONS (3)
  - Product use complaint [Unknown]
  - Product physical consistency issue [Unknown]
  - Product packaging quantity issue [Unknown]
